FAERS Safety Report 9440687 (Version 2)
Quarter: 2013Q3

REPORT INFORMATION
  Report Type: Spontaneous
  Country: US (occurrence: US)
  Receive Date: 20130805
  Receipt Date: 20130927
  Transmission Date: 20140515
  Serious: No
  Sender: FDA-Public Use
  Company Number: US-PFIZER INC-2013222300

PATIENT
  Age: 62 Year
  Sex: Female
  Weight: 53.52 kg

DRUGS (9)
  1. XELJANZ [Suspect]
     Dosage: 5 MG, 2X/DAY
     Route: 048
  2. XANAX [Concomitant]
     Dosage: 0.25 MG, UNK
  3. BOTOX [Concomitant]
     Dosage: 100 IU, UNK
  4. PREDNISONE [Concomitant]
     Dosage: 1 MG, UNK
  5. VIVELLE-DOT [Concomitant]
     Dosage: 0.025  MG, UNK
  6. NAPROXEN SODIUM/SUMATRIPTAN SUCCINATE [Concomitant]
     Dosage: 85-500 MG
  7. VITAMIN D [Concomitant]
     Dosage: 400 IU, UNK
  8. EXCEDRIN /USA/ [Concomitant]
     Dosage: UNK
  9. IRON [Concomitant]
     Dosage: UNK

REACTIONS (4)
  - Abdominal pain upper [Recovered/Resolved]
  - Abdominal distension [Recovered/Resolved]
  - Burning sensation [Unknown]
  - Headache [Recovering/Resolving]
